FAERS Safety Report 15248353 (Version 2)
Quarter: 2018Q4

REPORT INFORMATION
  Report Type: Spontaneous
  Country: US (occurrence: US)
  Receive Date: 20180807
  Receipt Date: 20181008
  Transmission Date: 20190204
  Serious: No
  Sender: FDA-Public Use
  Company Number: US-SA-2018SA213311

PATIENT
  Age: 66 Year
  Sex: Female

DRUGS (2)
  1. TOUJEO [Suspect]
     Active Substance: INSULIN GLARGINE
     Dosage: 211 U, QD
  2. TOUJEO [Suspect]
     Active Substance: INSULIN GLARGINE
     Indication: TYPE 2 DIABETES MELLITUS
     Dosage: 8-10 UNITS, BID
     Dates: start: 201710

REACTIONS (4)
  - Product storage error [Unknown]
  - Device operational issue [Unknown]
  - Product use issue [Unknown]
  - Product taste abnormal [Unknown]
